FAERS Safety Report 25190607 (Version 1)
Quarter: 2025Q2

REPORT INFORMATION
  Report Type: Report from Study
  Country: IT (occurrence: IT)
  Receive Date: 20250411
  Receipt Date: 20250411
  Transmission Date: 20250716
  Serious: Yes (Hospitalization, Other)
  Sender: TAKEDA
  Company Number: IT-JNJFOC-20250162017

PATIENT
  Age: 72 Year
  Sex: Female

DRUGS (14)
  1. BORTEZOMIB [Suspect]
     Active Substance: BORTEZOMIB
     Indication: Plasma cell myeloma
     Dates: start: 20211215, end: 20221102
  2. DEXAMETHASONE [Suspect]
     Active Substance: DEXAMETHASONE
     Indication: Plasma cell myeloma
     Dates: start: 20211215, end: 20221103
  3. DARZALEX [Suspect]
     Active Substance: DARATUMUMAB
     Indication: Plasma cell myeloma
     Dates: start: 20211215, end: 20221102
  4. LENALIDOMIDE [Suspect]
     Active Substance: LENALIDOMIDE
     Indication: Plasma cell myeloma
     Dates: start: 20211215, end: 20221101
  5. OMEPRAZOLE [Concomitant]
     Active Substance: OMEPRAZOLE
     Indication: Gastrointestinal disorder therapy
  6. ACYCLOVIR [Concomitant]
     Active Substance: ACYCLOVIR
     Indication: Herpes zoster
  7. BACTRIM [Concomitant]
     Active Substance: SULFAMETHOXAZOLE\TRIMETHOPRIM
     Indication: Antibiotic prophylaxis
  8. LASIX [Concomitant]
     Active Substance: FUROSEMIDE
     Indication: Renal failure
  9. DAPAGLIFLOZIN [Concomitant]
     Active Substance: DAPAGLIFLOZIN
     Indication: Diabetes mellitus
  10. Ivabradina accord [Concomitant]
     Indication: Cardiac disorder
  11. CANRENOATE POTASSIUM [Concomitant]
     Active Substance: CANRENOATE POTASSIUM
     Indication: Renal failure
  12. LYRICA [Concomitant]
     Active Substance: PREGABALIN
     Indication: Pain
  13. Sideremil [Concomitant]
     Indication: Anaemia
  14. Neuridase [Concomitant]
     Indication: Pain

REACTIONS (2)
  - Haematochezia [Unknown]
  - Anaemia [Recovered/Resolved]

NARRATIVE: CASE EVENT DATE: 20221122
